FAERS Safety Report 7619794-7 (Version None)
Quarter: 2011Q3

REPORT INFORMATION
  Report Type: 
  Country: None (occurrence: None)
  Receive Date: 20110719
  Receipt Date: 20110707
  Transmission Date: 20111222
  Serious: Yes (Hospitalization)
  Sender: FDA-Public Use
  Company Number: FR-ELI_LILLY_AND_COMPANY-FR201012004240

PATIENT
  Age: 87 Year
  Sex: Female

DRUGS (7)
  1. MODOPAR [Concomitant]
  2. FORTEO [Suspect]
     Indication: OSTEOPOROSIS
     Dosage: 20 UG, DAILY (1/D)
     Route: 058
     Dates: start: 20100503, end: 20101025
  3. CORDARONE [Concomitant]
  4. TRIVASTAL [Concomitant]
  5. FORTEO [Suspect]
     Dosage: 20 UG, QD
     Route: 058
     Dates: start: 20110201
  6. ZOCOR [Concomitant]
  7. PLAVIX [Concomitant]

REACTIONS (1)
  - FALL [None]
